FAERS Safety Report 6026646-5 (Version None)
Quarter: 2008Q4

REPORT INFORMATION
  Report Type: 
  Country: None (occurrence: None)
  Receive Date: 20081231
  Receipt Date: 20081218
  Transmission Date: 20090506
  Serious: Yes (Hospitalization)
  Sender: FDA-Public Use
  Company Number: KV200801358

PATIENT
  Age: 79 Year
  Sex: Male

DRUGS (10)
  1. ISOSORBIDE MONONITRATE [Suspect]
     Indication: CARDIAC DISORDER
     Dosage: 30 MG, QD, ORAL
     Route: 048
  2. OXYGEN (OXYGEN) [Concomitant]
  3. ^FLODIPINE^ [Concomitant]
  4. ALBUTEROL /00139501/ (SALBUTAMOL) [Concomitant]
  5. ASPIRIN [Concomitant]
  6. VITAMIN (UNSPECIFIED) [Concomitant]
  7. SPIRIVA [Concomitant]
  8. FORADIL [Concomitant]
  9. SAW PALMETTO /00833501/ (SERENOA REPENS) [Concomitant]
  10. LUPRON [Concomitant]

REACTIONS (3)
  - DYSPNOEA [None]
  - HEART RATE INCREASED [None]
  - PRODUCT QUALITY ISSUE [None]
